FAERS Safety Report 5593133-8 (Version None)
Quarter: 2008Q1

REPORT INFORMATION
  Report Type: 
  Country: None (occurrence: None)
  Receive Date: 20080114
  Receipt Date: 20080114
  Transmission Date: 20080703
  Serious: No
  Sender: FDA-Public Use
  Company Number: None

PATIENT
  Age: 52 Year
  Sex: Male

DRUGS (3)
  1. CLOPIDOGREL [Suspect]
     Indication: CATHETERISATION CARDIAC
     Dosage: 75MG  X1   PO
     Route: 048
     Dates: start: 20071121, end: 20071121
  2. ONDANSETRON [Suspect]
     Indication: NAUSEA
     Dosage: 4MG  X2   IV BOLUS
     Route: 040
     Dates: start: 20071119, end: 20071121
  3. ONDANSETRON [Suspect]
     Indication: VOMITING
     Dosage: 4MG  X2   IV BOLUS
     Route: 040
     Dates: start: 20071119, end: 20071121

REACTIONS (1)
  - ANGIOEDEMA [None]
